FAERS Safety Report 14023536 (Version 2)
Quarter: 2017Q4

REPORT INFORMATION
  Report Type: Spontaneous
  Country: RO (occurrence: RO)
  Receive Date: 20170929
  Receipt Date: 20171024
  Transmission Date: 20180321
  Serious: Yes (Death, Other)
  Sender: FDA-Public Use
  Company Number: RO-BAYER-2017-180753

PATIENT
  Age: 57 Year
  Sex: Male

DRUGS (2)
  1. NEXAVAR [Suspect]
     Active Substance: SORAFENIB
     Indication: RENAL CANCER
     Dosage: 200 MG, QID
     Route: 048
     Dates: start: 201605, end: 201608
  2. NEXAVAR [Suspect]
     Active Substance: SORAFENIB
     Indication: RENAL CANCER
     Dosage: 400MG PER DAY
     Route: 048

REACTIONS (4)
  - Palmar-plantar erythrodysaesthesia syndrome [Not Recovered/Not Resolved]
  - General physical health deterioration [None]
  - Rash [Not Recovered/Not Resolved]
  - Renal cell carcinoma [Fatal]

NARRATIVE: CASE EVENT DATE: 201605
